FAERS Safety Report 4772023-4 (Version None)
Quarter: 2005Q3

REPORT INFORMATION
  Report Type: 
  Country: None (occurrence: None)
  Receive Date: 20050916
  Receipt Date: 20031222
  Transmission Date: 20060218
  Serious: Yes (Hospitalization)
  Sender: FDA-Public Use
  Company Number: JP-ABBOTT-03P-087-0245480-00

PATIENT
  Sex: Female

DRUGS (13)
  1. KALETRA [Suspect]
     Indication: HIV INFECTION
     Route: 048
     Dates: start: 20031216, end: 20031221
  2. STAVUDINE [Concomitant]
     Indication: HIV INFECTION
     Route: 048
     Dates: start: 20031216, end: 20031226
  3. STAVUDINE [Concomitant]
     Route: 048
     Dates: start: 20040107
  4. LAMIVUDINE [Concomitant]
     Indication: HIV INFECTION
     Route: 048
     Dates: start: 20031216, end: 20031226
  5. LAMIVUDINE [Concomitant]
     Route: 048
     Dates: start: 20040107
  6. MEPIRIZOLE [Concomitant]
     Indication: PNEUMOCYSTIS JIROVECI PNEUMONIA
     Route: 048
     Dates: start: 20031208
  7. RISPERIDONE [Concomitant]
     Route: 048
     Dates: start: 20031117, end: 20031214
  8. RISPERIDONE [Concomitant]
     Route: 048
     Dates: start: 20031215
  9. LORAZEPAM [Concomitant]
     Route: 048
     Dates: start: 20031205
  10. SUCRALFATE [Concomitant]
     Indication: ABDOMINAL PAIN UPPER
     Route: 048
     Dates: start: 20031119
  11. MAGNESIUM OXIDE [Concomitant]
     Indication: CONSTIPATION
     Route: 048
     Dates: start: 20031115
  12. NELFINAVIR MESILATE [Concomitant]
     Indication: HIV INFECTION
     Route: 048
     Dates: start: 20031221, end: 20031226
  13. NELFINAVIR MESILATE [Concomitant]
     Route: 048
     Dates: start: 20040107

REACTIONS (4)
  - ATRIAL FLUTTER [None]
  - BLOOD PRESSURE DECREASED [None]
  - SICK SINUS SYNDROME [None]
  - SINUS ARREST [None]
